FAERS Safety Report 17442724 (Version 3)
Quarter: 2020Q2

REPORT INFORMATION
  Report Type: Report from Study
  Country: None (occurrence: US)
  Receive Date: 20200220
  Receipt Date: 20200626
  Transmission Date: 20200713
  Serious: Yes (Hospitalization, Other)
  Sender: FDA-Public Use
  Company Number: US-ABBVIE-20K-163-3269480-00

PATIENT
  Sex: Female
  Weight: 82.17 kg

DRUGS (4)
  1. VENCLEXTA [Suspect]
     Active Substance: VENETOCLAX
     Indication: COMPLICATION OF PREGNANCY
     Route: 048
     Dates: start: 202004
  2. VENCLEXTA [Suspect]
     Active Substance: VENETOCLAX
     Indication: ANAESTHETIC COMPLICATION CARDIAC
     Route: 048
     Dates: start: 201912, end: 202001
  3. VENCLEXTA [Suspect]
     Active Substance: VENETOCLAX
     Indication: ACUTE KIDNEY INJURY
     Route: 048
     Dates: start: 202001, end: 202004
  4. VENCLEXTA [Suspect]
     Active Substance: VENETOCLAX
     Indication: WALDENSTROM^S MACROGLOBULINAEMIA
     Route: 048
     Dates: start: 201910, end: 201911

REACTIONS (5)
  - Renal function test abnormal [Recovered/Resolved]
  - Dyspnoea [Recovered/Resolved]
  - Fluid retention [Recovered/Resolved]
  - Blood immunoglobulin M increased [Recovered/Resolved]
  - Off label use [Unknown]

NARRATIVE: CASE EVENT DATE: 2019
